FAERS Safety Report 14217248 (Version 1)
Quarter: 2017Q4

REPORT INFORMATION
  Report Type: Report from Study
  Country: US (occurrence: US)
  Receive Date: 20171123
  Receipt Date: 20171123
  Transmission Date: 20180321
  Serious: Yes (Death, Hospitalization, Other)
  Sender: FDA-Public Use
  Company Number: US-ROCHE-1944649

PATIENT

DRUGS (6)
  1. CYCLOSPORINE. [Suspect]
     Active Substance: CYCLOSPORINE
     Dosage: MAINTENANCE THERAPY
     Route: 048
  2. AZATHIOPRINE. [Suspect]
     Active Substance: AZATHIOPRINE
     Indication: PROPHYLAXIS AGAINST TRANSPLANT REJECTION
     Route: 065
  3. CYCLOSPORINE. [Suspect]
     Active Substance: CYCLOSPORINE
     Indication: PROPHYLAXIS AGAINST TRANSPLANT REJECTION
     Dosage: INDUCTION THERAPY
     Route: 042
  4. MUROMONAB-CD3 [Suspect]
     Active Substance: MUROMONAB-CD3
     Indication: PROPHYLAXIS AGAINST TRANSPLANT REJECTION
     Route: 065
  5. PREDNISONE. [Suspect]
     Active Substance: PREDNISONE
     Indication: PROPHYLAXIS AGAINST TRANSPLANT REJECTION
     Route: 065
  6. MYCOPHENOLATE MOFETIL. [Suspect]
     Active Substance: MYCOPHENOLATE MOFETIL
     Indication: PROPHYLAXIS AGAINST TRANSPLANT REJECTION
     Route: 065

REACTIONS (15)
  - Haemorrhage [Fatal]
  - Brain herniation [Fatal]
  - Infection protozoal [Unknown]
  - Peptic ulcer [Unknown]
  - Infection [Fatal]
  - Neoplasm malignant [Fatal]
  - Hypoxia [Fatal]
  - Seizure [Fatal]
  - Post transplant lymphoproliferative disorder [Unknown]
  - Cytomegalovirus infection [Unknown]
  - Intestinal infarction [Fatal]
  - Bacterial infection [Unknown]
  - Intestinal perforation [Fatal]
  - Fungal infection [Unknown]
  - Viral infection [Unknown]
